FAERS Safety Report 8339246-9 (Version None)
Quarter: 2012Q2

REPORT INFORMATION
  Report Type: 
  Country: None (occurrence: None)
  Receive Date: 20120507
  Receipt Date: 20120425
  Transmission Date: 20120825
  Serious: Yes (Hospitalization, Congenital Anomaly)
  Sender: FDA-Public Use
  Company Number: DE-JNJFOC-20120301611

PATIENT
  Sex: Female
  Weight: 3.72 kg

DRUGS (4)
  1. RISPERDAL CONSTA [Suspect]
     Indication: FOETAL EXPOSURE DURING PREGNANCY
     Route: 064
     Dates: start: 20100103, end: 20101013
  2. FOLIC ACID [Suspect]
     Indication: FOETAL EXPOSURE DURING PREGNANCY
     Route: 064
     Dates: start: 20100211, end: 20100329
  3. RISPERDAL [Suspect]
     Indication: FOETAL EXPOSURE DURING PREGNANCY
     Route: 064
     Dates: start: 20100103, end: 20101013
  4. TRUXAL [Suspect]
     Indication: FOETAL EXPOSURE DURING PREGNANCY
     Route: 064
     Dates: start: 20100127, end: 20100131

REACTIONS (2)
  - VENTRICULAR SEPTAL DEFECT [None]
  - ATRIAL SEPTAL DEFECT [None]
